FAERS Safety Report 7555300 (Version 9)
Quarter: 2013Q2

REPORT INFORMATION
  Report Type: Report from Study
  Country: JP (occurrence: JP)
  Receive Date: 20100826
  Receipt Date: 20130408
  Transmission Date: 20140414
  Serious: Yes (Hospitalization)
  Sender: FDA-Public Use
  Company Number: JP-ABBOTT-10P-087-0665649-00

PATIENT
  Age: 43 Year
  Sex: Female

DRUGS (5)
  1. LEUPRORELIN ACETATE [Suspect]
     Indication: MENOPAUSE
     Route: 058
     Dates: start: 20080328
  2. LEUPRORELIN ACETATE [Suspect]
     Indication: MENOPAUSE
  3. NOLVADEX [Concomitant]
     Indication: BREAST CANCER
     Route: 048
     Dates: start: 20080328
  4. NOLVADEX [Concomitant]
     Indication: BREAST CANCER
  5. ALLELOCK [Concomitant]
     Indication: PRODUCT USED FOR UNKNOWN INDICATION
     Route: 048
     Dates: start: 20090214, end: 20090410

REACTIONS (21)
  - Uterine polyp [Recovered/Resolved]
  - Heat illness [Recovered/Resolved]
  - Hepatic steatosis [Not Recovered/Not Resolved]
  - Weight increased [Not Recovered/Not Resolved]
  - Blood triglycerides increased [Recovered/Resolved]
  - Metrorrhagia [Recovered/Resolved]
  - Hyperhidrosis [Not Recovered/Not Resolved]
  - Hot flush [Not Recovered/Not Resolved]
  - Injection site pain [Recovered/Resolved]
  - Pyrexia [Recovered/Resolved]
  - Cough [Recovered/Resolved]
  - Nasopharyngitis [Recovered/Resolved]
  - Urticaria [Recovered/Resolved]
  - Hypertension [Not Recovered/Not Resolved]
  - Back pain [Not Recovered/Not Resolved]
  - Folliculitis [Unknown]
  - Hepatic function abnormal [None]
  - Chills [None]
  - Headache [None]
  - Electrocardiogram T wave abnormal [None]
  - Fluid intake reduced [None]
